FAERS Safety Report 16995020 (Version 1)
Quarter: 2019Q4

REPORT INFORMATION
  Report Type: Spontaneous
  Country: US (occurrence: US)
  Receive Date: 20191105
  Receipt Date: 20191105
  Transmission Date: 20200122
  Serious: No
  Sender: FDA-Public Use
  Company Number: US-JNJFOC-20191103273

PATIENT
  Sex: Male

DRUGS (6)
  1. RISPERDAL [Suspect]
     Active Substance: RISPERIDONE
     Route: 048
  2. RISPERDAL [Suspect]
     Active Substance: RISPERIDONE
     Route: 048
  3. RISPERDAL [Suspect]
     Active Substance: RISPERIDONE
     Indication: HALLUCINATION, AUDITORY
     Route: 048
  4. RISPERDAL [Suspect]
     Active Substance: RISPERIDONE
     Route: 048
  5. RISPERDAL [Suspect]
     Active Substance: RISPERIDONE
     Route: 048
  6. RISPERDAL [Suspect]
     Active Substance: RISPERIDONE
     Indication: HALLUCINATION, AUDITORY
     Route: 048

REACTIONS (1)
  - Gynaecomastia [Unknown]
